FAERS Safety Report 5051560-1 (Version None)
Quarter: 2006Q3

REPORT INFORMATION
  Report Type: 
  Country: None (occurrence: None)
  Receive Date: 20060711
  Receipt Date: 20060619
  Transmission Date: 20061208
  Serious: Yes (Other)
  Sender: FDA-Public Use
  Company Number: US200606004404

PATIENT
  Sex: Female
  Weight: 66.7 kg

DRUGS (13)
  1. CYMBALTA [Suspect]
     Indication: PAIN
     Dosage: 10 MG, DAILY, (1/D); 20 MG, DAILY (1/D)
     Dates: start: 20060217, end: 20060223
  2. CYMBALTA [Suspect]
     Indication: PAIN
     Dosage: 10 MG, DAILY, (1/D); 20 MG, DAILY (1/D)
     Dates: start: 20060224, end: 20060324
  3. ACETAMINOPHEN [Concomitant]
  4. IBUPROFEN [Concomitant]
  5. ZOLPIDEM TARTRATE [Concomitant]
  6. RIZATRIPTAN (RIZATRIPTAN) [Concomitant]
  7. CETIRIZINE (CETIRIZINE) [Concomitant]
  8. BLACK COHOSH                      (CIMICIFUGA RACEMOSA ROOT) [Concomitant]
  9. CITRACAL + D (CALCIUM CITRATE, ERGOCALCIFEROL) [Concomitant]
  10. FAMOTIDINE [Concomitant]
  11. PSEUDOEPHEDRINE (PSEUDOEPHEDRINE) [Concomitant]
  12. ASCORBIC ACID [Concomitant]
  13. MULTIVITAMINS (ASCORBIC ACID, ERGOCALCIFEROL, FOLIC ACID, NICOTINAMIDE [Concomitant]

REACTIONS (5)
  - ALANINE AMINOTRANSFERASE INCREASED [None]
  - ASPARTATE AMINOTRANSFERASE INCREASED [None]
  - BLOOD ALKALINE PHOSPHATASE INCREASED [None]
  - INCORRECT DOSE ADMINISTERED [None]
  - WRONG TECHNIQUE IN DRUG USAGE PROCESS [None]
